FAERS Safety Report 4399517-8 (Version None)
Quarter: 2004Q3

REPORT INFORMATION
  Report Type: 
  Country: None (occurrence: None)
  Receive Date: 20040712
  Receipt Date: 20040628
  Transmission Date: 20050211
  Serious: Yes (Hospitalization)
  Sender: FDA-Public Use
  Company Number: 2004-BP-02805NB

PATIENT
  Age: 77 Year
  Sex: Female

DRUGS (4)
  1. MEXITIL (MEXILETINE HYDROCHLORIDE) (KA) [Suspect]
     Indication: VENTRICULAR EXTRASYSTOLES
     Dosage: 250 MG PO
     Route: 048
     Dates: start: 20040331, end: 20040331
  2. TENORMIN [Suspect]
     Indication: ARRHYTHMIA
     Dosage: 25 MG PO
     Route: 048
     Dates: start: 20040331, end: 20040331
  3. LEVOFLOXACIN [Suspect]
     Indication: CONJUNCTIVITIS BACTERIAL
     Dosage: IO
     Dates: start: 20040331, end: 20040331
  4. FLUMETHOLON (FLUROMETHOLONE) [Suspect]
     Dosage: IO
     Dates: start: 20040331

REACTIONS (4)
  - ENANTHEMA [None]
  - LYMPHOCYTE STIMULATION TEST POSITIVE [None]
  - RASH [None]
  - SWELLING FACE [None]
